FAERS Safety Report 4450162-5 (Version None)
Quarter: 2004Q3

REPORT INFORMATION
  Report Type: 
  Country: None (occurrence: None)
  Receive Date: 20040915
  Receipt Date: 20040419
  Transmission Date: 20050211
  Serious: Yes (Other)
  Sender: FDA-Public Use
  Company Number: PHBS2004CO05463

PATIENT
  Age: 42 Year
  Sex: Female

DRUGS (2)
  1. TEGRETOL [Suspect]
     Indication: EPILEPSY
     Dosage: 1.6 G/DAY
     Route: 048
  2. DEPAKENE [Concomitant]
     Indication: CONVULSION
     Dosage: 700 MG/DAY
     Route: 065

REACTIONS (8)
  - ASTHENIA [None]
  - GRAND MAL CONVULSION [None]
  - HEADACHE [None]
  - LOSS OF CONSCIOUSNESS [None]
  - NAUSEA [None]
  - POISONING [None]
  - SOMNOLENCE [None]
  - VOMITING [None]
